FAERS Safety Report 10085606 (Version 1)
Quarter: 2014Q2

REPORT INFORMATION
  Report Type: Spontaneous
  Country: NZ (occurrence: NZ)
  Receive Date: 20140418
  Receipt Date: 20140418
  Transmission Date: 20141212
  Serious: Yes (Hospitalization, Other)
  Sender: FDA-Public Use
  Company Number: NZ-PAR PHARMACEUTICAL, INC-2014SCPR009020

PATIENT
  Sex: 0

DRUGS (3)
  1. DONEPEZIL HYDROCHLORIDE [Suspect]
     Indication: VASCULAR DEMENTIA
     Dosage: 10 MG, / DAY
     Route: 065
  2. DONEPEZIL HYDROCHLORIDE [Suspect]
     Dosage: 5 MG, / DAY
     Route: 065
  3. METOPROLOL [Concomitant]
     Indication: PRODUCT USED FOR UNKNOWN INDICATION
     Dosage: 47.5 MG, / DAY
     Route: 065

REACTIONS (2)
  - Bipolar II disorder [Recovering/Resolving]
  - Off label use [Unknown]
